FAERS Safety Report 6134168-6 (Version None)
Quarter: 2009Q1

REPORT INFORMATION
  Report Type: 
  Country: None (occurrence: None)
  Receive Date: 20090326
  Receipt Date: 20081117
  Transmission Date: 20090719
  Serious: Yes (Other)
  Sender: FDA-Public Use
  Company Number: US-AMGEN-US318694

PATIENT
  Sex: Female
  Weight: 58.1 kg

DRUGS (3)
  1. NPLATE [Suspect]
     Indication: IDIOPATHIC THROMBOCYTOPENIC PURPURA
     Route: 058
     Dates: start: 20080924
  2. CORTICOSTEROIDS [Concomitant]
     Dates: start: 19580101
  3. IMMUNOGLOBULINS [Concomitant]
     Route: 042
     Dates: start: 20031001

REACTIONS (1)
  - HEADACHE [None]
